FAERS Safety Report 5116602-3 (Version None)
Quarter: 2006Q3

REPORT INFORMATION
  Report Type: 
  Country: None (occurrence: None)
  Receive Date: 20060920
  Receipt Date: 20060905
  Transmission Date: 20061208
  Serious: Yes (Hospitalization)
  Sender: FDA-Public Use
  Company Number: 2006BH013239

PATIENT
  Age: 14 Year
  Sex: Female
  Weight: 72.1219 kg

DRUGS (11)
  1. GAMMAGARD S/D [Suspect]
     Indication: MYASTHENIA GRAVIS
     Dosage: EVERY MO;IV
     Route: 042
     Dates: start: 20060802
  2. GAMMAGARD S/D [Suspect]
  3. PROVIGIL [Concomitant]
  4. ADDERALL XR 10 [Concomitant]
  5. GEODON [Concomitant]
  6. PROTONIX [Concomitant]
  7. TOPAMAX [Concomitant]
  8. VITAMINS [Concomitant]
  9. SUPPLEMENTS [Concomitant]
  10. THYROID TAB [Concomitant]
  11. CELEXA [Concomitant]

REACTIONS (4)
  - ASTHENIA [None]
  - BLOOD PRESSURE DECREASED [None]
  - DIZZINESS [None]
  - DYSPNOEA [None]
